FAERS Safety Report 11092982 (Version 1)
Quarter: 2015Q2

REPORT INFORMATION
  Report Type: Spontaneous
  Country: US (occurrence: None)
  Receive Date: 20150504
  Receipt Date: 20150504
  Transmission Date: 20150821
  Serious: Yes (Other)
  Sender: FDA-Public Use
  Company Number: 2015COR400080

PATIENT
  Age: 33 Year
  Sex: Male

DRUGS (5)
  1. PHENYTOIN. [Concomitant]
     Active Substance: PHENYTOIN
  2. NALTREXONE [Concomitant]
     Active Substance: NALTREXONE
  3. ZONISAMIDE (ZONISAMIDE) UNKNOWN [Suspect]
     Active Substance: ZONISAMIDE
  4. LORATADINE. [Concomitant]
     Active Substance: LORATADINE
  5. PROPRANOLOL [Concomitant]
     Active Substance: PROPRANOLOL\PROPRANOLOL HYDROCHLORIDE

REACTIONS (7)
  - Perinephritis [None]
  - Acute kidney injury [None]
  - Pneumonia [None]
  - Loss of consciousness [None]
  - Status epilepticus [None]
  - Rhabdomyolysis [None]
  - Haemodialysis [None]
